FAERS Safety Report 9642458 (Version 1)
Quarter: 2013Q4

REPORT INFORMATION
  Report Type: Other
  Country: JP (occurrence: JP)
  Receive Date: 20131024
  Receipt Date: 20131024
  Transmission Date: 20140711
  Serious: Yes (Other)
  Sender: FDA-Public Use
  Company Number: JP-BRISTOL-MYERS SQUIBB COMPANY-19595768

PATIENT
  Age: 5 Decade
  Sex: Female

DRUGS (1)
  1. TRIAMCINOLONE ACE INJ [Suspect]
     Indication: PAIN
     Dosage: 30 INJ TOTAL

REACTIONS (2)
  - Ligament rupture [Recovering/Resolving]
  - Muscle contracture [Recovering/Resolving]
